FAERS Safety Report 21936738 (Version 1)
Quarter: 2023Q1

REPORT INFORMATION
  Report Type: Spontaneous
  Country: US (occurrence: None)
  Receive Date: 20230201
  Receipt Date: 20230201
  Transmission Date: 20230418
  Serious: Yes (Hospitalization, Other)
  Sender: FDA-Public Use
  Company Number: US-Unichem Pharmaceuticals (USA) Inc-UCM202301-000125

PATIENT
  Age: 65 Year
  Sex: Female

DRUGS (2)
  1. METFORMIN HYDROCHLORIDE [Suspect]
     Active Substance: METFORMIN HYDROCHLORIDE
     Indication: Type 2 diabetes mellitus
     Dosage: UNKNOWN
  2. EMPAGLIFLOZIN [Concomitant]
     Active Substance: EMPAGLIFLOZIN
     Indication: Type 2 diabetes mellitus
     Dosage: UNKNOWN

REACTIONS (7)
  - Unresponsive to stimuli [Unknown]
  - Mental impairment [Unknown]
  - Renal failure [Recovered/Resolved]
  - Euglycaemic diabetic ketoacidosis [Unknown]
  - Lactic acidosis [Unknown]
  - Hypotension [Recovered/Resolved]
  - Bacterial sepsis [Recovered/Resolved]
